FAERS Safety Report 17683332 (Version 1)
Quarter: 2020Q2

REPORT INFORMATION
  Report Type: Spontaneous
  Country: US (occurrence: US)
  Receive Date: 20200420
  Receipt Date: 20200420
  Transmission Date: 20200714
  Serious: No
  Sender: FDA-Public Use
  Company Number: US-GLAXOSMITHKLINE-US2020066139

PATIENT
  Sex: Female

DRUGS (1)
  1. FLONASE [Suspect]
     Active Substance: FLUTICASONE PROPIONATE
     Indication: HYPERSENSITIVITY
     Dosage: UNK (2 DAYS)

REACTIONS (10)
  - Nausea [Recovering/Resolving]
  - Anxiety [Recovering/Resolving]
  - Pain [Recovering/Resolving]
  - Dry mouth [Recovering/Resolving]
  - Panic attack [Recovering/Resolving]
  - Decreased appetite [Recovering/Resolving]
  - Influenza like illness [Unknown]
  - Paraesthesia [Recovering/Resolving]
  - Joint stiffness [Recovering/Resolving]
  - Palpitations [Recovering/Resolving]
